FAERS Safety Report 7242203-7 (Version None)
Quarter: 2011Q1

REPORT INFORMATION
  Report Type: 
  Country: None (occurrence: None)
  Receive Date: 20110124
  Receipt Date: 20110114
  Transmission Date: 20110831
  Serious: Yes (Hospitalization, Other)
  Sender: FDA-Public Use
  Company Number: NL-MEDIMMUNE-MEDI-0012254

PATIENT
  Sex: Male
  Weight: 7.9 kg

DRUGS (2)
  1. SYNAGIS [Suspect]
     Route: 030
     Dates: start: 20100909, end: 20100909
  2. SYNAGIS [Suspect]
     Route: 030
     Dates: start: 20101202, end: 20101230

REACTIONS (9)
  - CRYING [None]
  - FLUID INTAKE REDUCED [None]
  - NASOPHARYNGITIS [None]
  - BODY TEMPERATURE INCREASED [None]
  - NERVE GRAFT [None]
  - RESPIRATORY SYNCYTIAL VIRUS INFECTION [None]
  - COUGH [None]
  - RHINORRHOEA [None]
  - DYSPNOEA [None]
